FAERS Safety Report 6851789-3 (Version None)
Quarter: 2010Q3

REPORT INFORMATION
  Report Type: 
  Country: None (occurrence: None)
  Receive Date: 20100717
  Receipt Date: 20071026
  Transmission Date: 20110219
  Serious: No
  Sender: FDA-Public Use
  Company Number: US-PFIZER INC-2007093222

PATIENT

DRUGS (2)
  1. CHANTIX [Suspect]
  2. ALCOHOL [Concomitant]

REACTIONS (1)
  - AGGRESSION [None]
